FAERS Safety Report 6333526-4 (Version None)
Quarter: 2009Q3

REPORT INFORMATION
  Report Type: 
  Country: None (occurrence: None)
  Receive Date: 20090828
  Receipt Date: 20090821
  Transmission Date: 20100115
  Serious: Yes (Disabling, Other)
  Sender: FDA-Public Use
  Company Number: PR-MERCK-0805USA02810

PATIENT
  Age: 60 Year
  Sex: Female

DRUGS (6)
  1. FOSAMAX [Suspect]
     Indication: OSTEOPOROSIS
     Route: 048
     Dates: start: 20020101, end: 20070701
  2. FOSAMAX [Suspect]
     Route: 048
     Dates: start: 20030201, end: 20030301
  3. FOSAMAX [Suspect]
     Route: 048
     Dates: start: 20030301, end: 20080101
  4. FOSAMAX [Suspect]
     Route: 048
     Dates: end: 20080101
  5. FOSAMAX PLUS D [Suspect]
     Indication: OSTEOPOROSIS
     Route: 048
     Dates: start: 20070801, end: 20080101
  6. EVISTA [Concomitant]
     Indication: OSTEOPOROSIS
     Route: 065
     Dates: start: 20000101

REACTIONS (11)
  - BONE DISORDER [None]
  - GASTRITIS [None]
  - INFECTION [None]
  - JOINT CREPITATION [None]
  - MASTICATION DISORDER [None]
  - MITRAL VALVE PROLAPSE [None]
  - OSTEONECROSIS [None]
  - PAIN [None]
  - PAIN IN JAW [None]
  - RESORPTION BONE INCREASED [None]
  - TEMPOROMANDIBULAR JOINT SYNDROME [None]
